FAERS Safety Report 17468484 (Version 1)
Quarter: 2020Q1

REPORT INFORMATION
  Report Type: Spontaneous
  Country: US (occurrence: US)
  Receive Date: 20200227
  Receipt Date: 20200227
  Transmission Date: 20200409
  Serious: Yes (Hospitalization)
  Sender: FDA-Public Use
  Company Number: US-ASTRAZENECA-2020SE28583

PATIENT
  Age: 653 Day
  Sex: Male
  Weight: 10.3 kg

DRUGS (2)
  1. SYNAGIS [Suspect]
     Active Substance: PALIVIZUMAB
     Dosage: 100 MG, 50 MG, 15 MG/KG MONTHLY
     Route: 030
  2. SYNAGIS [Suspect]
     Active Substance: PALIVIZUMAB
     Dosage: 100 MG, 50 MG, 15 MG/KG MONTHLY
     Route: 030
     Dates: start: 20200114

REACTIONS (2)
  - Respiratory distress [Unknown]
  - Inappropriate schedule of product administration [Unknown]

NARRATIVE: CASE EVENT DATE: 20200111
